FAERS Safety Report 14379151 (Version 1)
Quarter: 2018Q1

REPORT INFORMATION
  Report Type: Spontaneous
  Country: US (occurrence: US)
  Receive Date: 20180112
  Receipt Date: 20180112
  Transmission Date: 20180509
  Serious: Yes (Other)
  Sender: FDA-Public Use
  Company Number: US-AUROBINDO-AUR-APL-2018-001689

PATIENT
  Age: 26 Year
  Sex: Female
  Weight: 84 kg

DRUGS (4)
  1. FENTANYL. [Concomitant]
     Active Substance: FENTANYL
     Indication: SEDATION
     Dosage: 100 ?G, UNK
  2. DECADRON [Concomitant]
     Active Substance: DEXAMETHASONE
     Indication: PRODUCT USED FOR UNKNOWN INDICATION
     Dosage: 2 MG, UNK
     Route: 008
  3. MIDAZOLAM [Concomitant]
     Active Substance: MIDAZOLAM HYDROCHLORIDE
     Indication: SEDATION
     Dosage: 2 MG, UNK
  4. ROPIVACAINE HYDROCHLORIDE INJECTION USP 0.5 % [Suspect]
     Active Substance: ROPIVACAINE HYDROCHLORIDE
     Indication: NERVE BLOCK
     Dosage: 20 ML, UNK
     Route: 008

REACTIONS (5)
  - Hypotension [Unknown]
  - Incorrect route of drug administration [None]
  - Toxicity to various agents [None]
  - Bradycardia [Unknown]
  - Unresponsive to stimuli [Unknown]
